FAERS Safety Report 7512539-0 (Version None)
Quarter: 2011Q2

REPORT INFORMATION
  Report Type: 
  Country: None (occurrence: None)
  Receive Date: 20110531
  Receipt Date: 20110525
  Transmission Date: 20111010
  Serious: Yes (Death)
  Sender: FDA-Public Use
  Company Number: CH-ROCHE-779177

PATIENT
  Sex: Female

DRUGS (3)
  1. GEMCITABINE [Concomitant]
  2. AVASTIN [Suspect]
     Route: 042
  3. OXALIPLATIN [Concomitant]

REACTIONS (1)
  - DEATH [None]
